FAERS Safety Report 4698573-7 (Version None)
Quarter: 2005Q2

REPORT INFORMATION
  Report Type: 
  Country: None (occurrence: None)
  Receive Date: 20050622
  Receipt Date: 20050607
  Transmission Date: 20051028
  Serious: Yes (Other)
  Sender: FDA-Public Use
  Company Number: US015405

PATIENT
  Age: 28 Year
  Sex: Female
  Weight: 65.7716 kg

DRUGS (9)
  1. GABITRIL [Suspect]
     Indication: ANXIETY
     Dosage: 2 MG QD; ORAL
     Route: 048
     Dates: start: 20050504, end: 20050505
  2. GABITRIL [Suspect]
     Indication: ANXIETY
     Dosage: 2 MG, BID; ORAL
     Route: 048
     Dates: start: 20050506, end: 20050509
  3. GABITRIL [Suspect]
     Indication: ANXIETY
     Dosage: 4 MG BID; ORAL
     Route: 048
     Dates: start: 20050510, end: 20050516
  4. GABITRIL [Suspect]
     Indication: ANXIETY
     Dosage: 4 MG TID; ORAL
     Route: 048
     Dates: start: 20050517, end: 20050526
  5. GABITRIL [Suspect]
     Indication: ANXIETY
     Dosage: 24 MG QD; ORAL
     Route: 048
     Dates: start: 20050527, end: 20050602
  6. ABILIFY [Concomitant]
  7. SYMBYAX [Concomitant]
  8. LAMICTAL [Concomitant]
  9. KLONOPIN [Concomitant]

REACTIONS (2)
  - CONVULSION [None]
  - POSTICTAL STATE [None]
